FAERS Safety Report 18730154 (Version 1)
Quarter: 2021Q1

REPORT INFORMATION
  Report Type: Spontaneous
  Country: IT (occurrence: IT)
  Receive Date: 20210112
  Receipt Date: 20210112
  Transmission Date: 20210419
  Serious: Yes (Death, Hospitalization, Other)
  Sender: FDA-Public Use
  Company Number: IT-IBIGEN-2021.09790

PATIENT
  Age: 75 Year
  Sex: Male

DRUGS (5)
  1. AZITHROMYCIN DIHYDRATE. [Suspect]
     Active Substance: AZITHROMYCIN DIHYDRATE
     Indication: ANTIBIOTIC PROPHYLAXIS
     Dosage: UNK UNK, UNKNOWN
     Route: 065
  2. HYDROXYCHLOROQUINE [Suspect]
     Active Substance: HYDROXYCHLOROQUINE
     Indication: COVID-19
     Dosage: UNK UNK, UNKNOWN
     Route: 065
  3. PIPERACILLIN/TAZOBACTAM [Suspect]
     Active Substance: PIPERACILLIN SODIUM\TAZOBACTAM SODIUM
     Indication: COVID-19
     Dosage: UNK UNK, UNKNOWN
     Route: 065
  4. OSELTAMIVIR [Suspect]
     Active Substance: OSELTAMIVIR
     Indication: COVID-19
     Dosage: UNK UNK, UNKNOWN
     Route: 065
  5. LOPINAVIR/RITONAVIR [Suspect]
     Active Substance: LOPINAVIR\RITONAVIR
     Indication: COVID-19
     Dosage: UNK UNK, UNKNOWN
     Route: 065

REACTIONS (3)
  - Respiratory failure [Fatal]
  - Drug interaction [Unknown]
  - Condition aggravated [Unknown]
